FAERS Safety Report 7545190-7 (Version None)
Quarter: 2011Q2

REPORT INFORMATION
  Report Type: 
  Country: None (occurrence: None)
  Receive Date: 20110614
  Receipt Date: 20110601
  Transmission Date: 20111010
  Serious: Yes (Hospitalization)
  Sender: FDA-Public Use
  Company Number: BR-ELI_LILLY_AND_COMPANY-BR201106000545

PATIENT
  Sex: Female
  Weight: 72 kg

DRUGS (5)
  1. CALCIUM CARBONATE [Concomitant]
     Dosage: UNK, UNKNOWN
  2. FORTEO [Suspect]
     Indication: OSTEOPOROSIS
     Dosage: UNK, UNKNOWN
     Route: 065
     Dates: start: 20110501, end: 20110501
  3. FORTEO [Suspect]
     Dosage: UNK, QD
     Route: 065
     Dates: start: 20110501
  4. CALCIUM CARBONATE [Concomitant]
     Indication: OSTEOPOROSIS
     Dosage: 600 MG, TID
     Route: 048
     Dates: start: 20100101
  5. VITAMIN D [Concomitant]
     Dosage: UNK, UNKNOWN
     Route: 065

REACTIONS (2)
  - CHOLANGIOGRAM [None]
  - BONE PAIN [None]
